FAERS Safety Report 14331778 (Version 1)
Quarter: 2017Q4

REPORT INFORMATION
  Report Type: Report from Study
  Country: AU (occurrence: AU)
  Receive Date: 20171228
  Receipt Date: 20171228
  Transmission Date: 20180321
  Serious: Yes (Other)
  Sender: FDA-Public Use
  Company Number: PHHY2017AU194465

PATIENT
  Sex: Female

DRUGS (4)
  1. ROSUVASTATIN. [Concomitant]
     Active Substance: ROSUVASTATIN
     Indication: CARDIAC DISORDER
  2. COSENTYX [Suspect]
     Active Substance: SECUKINUMAB
     Indication: PSORIASIS
     Dosage: 150 MG, QMO
     Route: 058
     Dates: start: 20160801
  3. METHOTREXATE. [Concomitant]
     Active Substance: METHOTREXATE
     Indication: PSORIASIS
     Dosage: UNK
     Route: 048
     Dates: start: 2010, end: 20160901
  4. ROSUVASTATIN. [Concomitant]
     Active Substance: ROSUVASTATIN
     Indication: BLOOD CHOLESTEROL ABNORMAL
     Route: 048
     Dates: end: 20160901

REACTIONS (7)
  - Injection site pain [Unknown]
  - Nasopharyngitis [Unknown]
  - Injection site bruising [Unknown]
  - Lower respiratory tract infection [Unknown]
  - Arthritis [Not Recovered/Not Resolved]
  - Inappropriate schedule of drug administration [Unknown]
  - Joint swelling [Not Recovered/Not Resolved]
